FAERS Safety Report 18578143 (Version 1)
Quarter: 2020Q4

REPORT INFORMATION
  Report Type: Spontaneous
  Country: IN (occurrence: IN)
  Receive Date: 20201204
  Receipt Date: 20201204
  Transmission Date: 20210114
  Serious: Yes (Hospitalization, Other)
  Sender: FDA-Public Use
  Company Number: IN-SUN PHARMACEUTICAL INDUSTRIES LTD-2020R1-269688

PATIENT
  Age: 16 Year
  Sex: Female

DRUGS (1)
  1. TOPIRAMATE. [Suspect]
     Active Substance: TOPIRAMATE
     Indication: FOCAL DYSCOGNITIVE SEIZURES
     Dosage: 1000 MILLIGRAM, DAILY
     Route: 065

REACTIONS (4)
  - Weight decreased [Recovering/Resolving]
  - Medication error [Unknown]
  - Anorexia nervosa [Recovering/Resolving]
  - Personality disorder [Recovering/Resolving]
